FAERS Safety Report 9227821 (Version 2)
Quarter: 2013Q2

REPORT INFORMATION
  Report Type: Spontaneous
  Country: US (occurrence: US)
  Receive Date: 20130412
  Receipt Date: 20130425
  Transmission Date: 20140414
  Serious: Yes (Other)
  Sender: FDA-Public Use
  Company Number: US-PFIZER INC-2013115286

PATIENT
  Age: 67 Year
  Sex: Female
  Weight: 117.01 kg

DRUGS (4)
  1. CHANTIX [Suspect]
     Indication: SMOKING CESSATION THERAPY
     Dosage: 0.5 MG, 1X/DAY
     Route: 048
     Dates: start: 20130209, end: 2013
  2. CHANTIX [Suspect]
     Dosage: UNK
     Route: 048
     Dates: start: 2013, end: 20130301
  3. CRESTOR [Concomitant]
     Indication: BLOOD CHOLESTEROL INCREASED
     Dosage: UNK
  4. WARFARIN [Concomitant]
     Dosage: UNK

REACTIONS (2)
  - Arterial occlusive disease [Unknown]
  - Weight increased [Unknown]
